FAERS Safety Report 25642645 (Version 2)
Quarter: 2025Q3

REPORT INFORMATION
  Report Type: Spontaneous
  Country: EU (occurrence: EU)
  Receive Date: 20250805
  Receipt Date: 20250808
  Transmission Date: 20251020
  Serious: Yes (Other)
  Sender: EMD SERONO INC
  Company Number: EU-Merck Healthcare KGaA-2025038937

PATIENT
  Sex: Female

DRUGS (1)
  1. MAVENCLAD [Suspect]
     Active Substance: CLADRIBINE
     Indication: Multiple sclerosis

REACTIONS (17)
  - Metastases to liver [Unknown]
  - Hepatic steatosis [Unknown]
  - Hepatic cyst [Unknown]
  - Cholangiocarcinoma [Unknown]
  - Infected neoplasm [Unknown]
  - Lymphadenopathy [Unknown]
  - Ductal adenocarcinoma of pancreas [Not Recovered/Not Resolved]
  - Cholelithiasis [Unknown]
  - Biliary obstruction [Unknown]
  - Haemoglobin decreased [Unknown]
  - Plateletcrit increased [Unknown]
  - Blood sodium decreased [Unknown]
  - Blood chloride decreased [Unknown]
  - Blood urea increased [Unknown]
  - Chondrosis [Unknown]
  - Leiomyoma [Unknown]
  - Spinal osteoarthritis [Unknown]
